FAERS Safety Report 5625947-X (Version None)
Quarter: 2008Q1

REPORT INFORMATION
  Report Type: 
  Country: None (occurrence: None)
  Receive Date: 20080213
  Receipt Date: 20080213
  Transmission Date: 20080703
  Serious: Yes (Death)
  Sender: FDA-Public Use
  Company Number: None

PATIENT
  Age: 32 Year
  Sex: Male
  Weight: 108.8633 kg

DRUGS (1)
  1. ABILIFY [Suspect]
     Indication: DEPRESSION
     Dosage: BUCCAL
     Route: 002
     Dates: start: 20010201, end: 20070909

REACTIONS (4)
  - BLOOD GLUCOSE INCREASED [None]
  - GLOSSODYNIA [None]
  - PYREXIA [None]
  - THIRST [None]
